FAERS Safety Report 4657719-7 (Version None)
Quarter: 2005Q2

REPORT INFORMATION
  Report Type: 
  Country: None (occurrence: None)
  Receive Date: 20050404
  Receipt Date: 20050110
  Transmission Date: 20051028
  Serious: No
  Sender: FDA-Public Use
  Company Number: USA041286722

PATIENT
  Age: 67 Year
  Sex: Female

DRUGS (7)
  1. CYMBALTA [Suspect]
     Indication: DEPRESSION
     Dosage: 30 MG DAY
     Dates: start: 20040101
  2. DARVOCET-N 100 [Concomitant]
  3. HYDROCODONE [Concomitant]
  4. PREVACID [Concomitant]
  5. AMITRIPTYLINE [Concomitant]
  6. NEURONTIN (GABAPENTIN PFIZER) [Concomitant]
  7. CLONAZEPAM [Concomitant]

REACTIONS (1)
  - CHROMATURIA [None]
